FAERS Safety Report 6358877-9 (Version None)
Quarter: 2009Q3

REPORT INFORMATION
  Report Type: 
  Country: None (occurrence: None)
  Receive Date: 20090916
  Receipt Date: 20090903
  Transmission Date: 20100115
  Serious: No
  Sender: FDA-Public Use
  Company Number: US-ABBOTT-09P-163-0595850-00

PATIENT
  Sex: Female
  Weight: 91.254 kg

DRUGS (10)
  1. TRILIPIX [Suspect]
     Indication: METABOLIC SYNDROME
     Route: 048
     Dates: start: 20090601, end: 20090801
  2. TRILIPIX [Suspect]
     Route: 048
     Dates: start: 20090801, end: 20090801
  3. ATENOLOL [Concomitant]
     Indication: HYPERTENSION
     Route: 048
  4. ACTOPLUS MET [Concomitant]
     Indication: DIABETES MELLITUS
     Dosage: 15/500MG
     Route: 048
  5. MOBIC [Concomitant]
     Indication: DRUG USE FOR UNKNOWN INDICATION
     Route: 048
  6. NIASPAN [Concomitant]
     Indication: BLOOD CHOLESTEROL INCREASED
     Route: 048
  7. FISH OIL [Concomitant]
     Indication: BLOOD CHOLESTEROL INCREASED
  8. CALCIUM WITH VITAMIN D [Concomitant]
     Indication: MINERAL SUPPLEMENTATION
  9. CALCIUM WITH VITAMIN D [Concomitant]
     Indication: VITAMIN SUPPLEMENTATION
  10. AMITRIPTYLINE [Concomitant]
     Indication: DEPRESSION
     Route: 048

REACTIONS (1)
  - MYALGIA [None]
